FAERS Safety Report 13382108 (Version 1)
Quarter: 2017Q1

REPORT INFORMATION
  Report Type: Spontaneous
  Country: IT (occurrence: IT)
  Receive Date: 20170329
  Receipt Date: 20170329
  Transmission Date: 20170429
  Serious: Yes (Death)
  Sender: FDA-Public Use
  Company Number: IT-PFIZER INC-2017131706

PATIENT
  Sex: Female

DRUGS (1)
  1. NOVASTAN [Suspect]
     Active Substance: ARGATROBAN
     Dosage: UNK
     Route: 065

REACTIONS (1)
  - Hepatic failure [Fatal]
